FAERS Safety Report 9519937 (Version 2)
Quarter: 2013Q3

REPORT INFORMATION
  Report Type: Spontaneous
  Country: US (occurrence: US)
  Receive Date: 20130912
  Receipt Date: 20130912
  Transmission Date: 20140515
  Serious: Yes (Hospitalization)
  Sender: FDA-Public Use
  Company Number: US-US-EMD SERONO, INC.-230145K08USA

PATIENT
  Age: 48 Year
  Sex: Female

DRUGS (6)
  1. REBIF [Suspect]
     Indication: MULTIPLE SCLEROSIS
     Route: 058
     Dates: start: 20030922, end: 200803
  2. REBIF [Suspect]
     Dates: start: 200809
  3. REBIF [Suspect]
     Route: 058
     Dates: start: 20120328, end: 20120920
  4. REBIF [Suspect]
     Route: 058
     Dates: start: 20130405
  5. MOTRIN [Concomitant]
     Indication: PREMEDICATION
  6. SYNTHROID [Concomitant]
     Indication: THYROID DISORDER

REACTIONS (3)
  - Intervertebral disc disorder [Recovered/Resolved]
  - Spinal disorder [Unknown]
  - Injection site erythema [Unknown]
